FAERS Safety Report 17708324 (Version 1)
Quarter: 2020Q2

REPORT INFORMATION
  Report Type: Report from Study
  Country: BR (occurrence: BR)
  Receive Date: 20200426
  Receipt Date: 20200426
  Transmission Date: 20200714
  Serious: Yes (Hospitalization, Other)
  Sender: FDA-Public Use
  Company Number: NVSC2020BR110581

PATIENT
  Age: 47 Year
  Sex: Female

DRUGS (2)
  1. AZITHROMYCIN ANHYDROUS. [Suspect]
     Active Substance: AZITHROMYCIN ANHYDROUS
     Indication: CORONAVIRUS INFECTION
     Dosage: UNK
     Route: 065
     Dates: start: 202004
  2. COSENTYX [Suspect]
     Active Substance: SECUKINUMAB
     Indication: PSORIASIS
     Dosage: UNK
     Route: 065
     Dates: start: 20191217

REACTIONS (11)
  - Dyspnoea [Unknown]
  - Headache [Recovered/Resolved]
  - Pain [Unknown]
  - Malaise [Unknown]
  - Discomfort [Recovering/Resolving]
  - Traumatic lung injury [Unknown]
  - Coronavirus infection [Recovering/Resolving]
  - Blood pressure abnormal [Unknown]
  - Anosmia [Recovering/Resolving]
  - Palate injury [Recovering/Resolving]
  - Back pain [Recovering/Resolving]

NARRATIVE: CASE EVENT DATE: 20200414
